FAERS Safety Report 23603540 (Version 1)
Quarter: 2024Q1

REPORT INFORMATION
  Report Type: 
  Country: AU (occurrence: AU)
  Receive Date: 20240307
  Receipt Date: 20240307
  Transmission Date: 20240410
  Serious: Yes (Other)
  Sender: FDA-Public Use
  Company Number: AU-CELLTRION INC.-2024AU005302

PATIENT

DRUGS (3)
  1. ADALIMUMAB [Suspect]
     Active Substance: ADALIMUMAB\ISOPROPYL ALCOHOL
     Indication: Product used for unknown indication
  2. PROLIA [Suspect]
     Active Substance: DENOSUMAB
     Indication: Product used for unknown indication
  3. GOLIMUMAB [Concomitant]
     Active Substance: GOLIMUMAB

REACTIONS (6)
  - Necrotising retinitis [Unknown]
  - Retinal vasculitis [Unknown]
  - Rheumatoid arthritis [Unknown]
  - Scleritis [Unknown]
  - Subretinal fibrosis [Unknown]
  - Off label use [Unknown]
